FAERS Safety Report 7860011-0 (Version None)
Quarter: 2011Q4

REPORT INFORMATION
  Report Type: 
  Country: None (occurrence: None)
  Receive Date: 20111025
  Receipt Date: 20111004
  Transmission Date: 20120403
  Serious: Yes (Death, Life-Threatening, Hospitalization)
  Sender: FDA-Public Use
  Company Number: 2011002059

PATIENT
  Age: 72 Year
  Sex: Female

DRUGS (7)
  1. PROMAC (POLAPREZINC) [Concomitant]
  2. VOLTAREN [Concomitant]
  3. EXCELASE (MEILASE/ORIPASE/PANCREATIC ENZYME/PROCTASE/SANACTASE) [Concomitant]
  4. TARCEVA [Suspect]
     Indication: LUNG ADENOCARCINOMA
     Dosage: 150 MG, UID/QD, ORAL
     Route: 048
     Dates: start: 20101225, end: 20110421
  5. DUROTEP (FENTANYL) [Concomitant]
  6. NAUZELIN (DOMPERIDONE) [Concomitant]
  7. URSO 250 [Concomitant]

REACTIONS (15)
  - HYPOAESTHESIA [None]
  - CARBON DIOXIDE INCREASED [None]
  - BLOOD LACTATE DEHYDROGENASE INCREASED [None]
  - POSTRESUSCITATION ENCEPHALOPATHY [None]
  - VOMITING [None]
  - ASPARTATE AMINOTRANSFERASE INCREASED [None]
  - WHITE BLOOD CELL COUNT INCREASED [None]
  - CARDIO-RESPIRATORY ARREST [None]
  - ACUTE RESPIRATORY DISTRESS SYNDROME [None]
  - ASTHENIA [None]
  - BACK PAIN [None]
  - ALANINE AMINOTRANSFERASE INCREASED [None]
  - PNEUMONIA BACTERIAL [None]
  - PNEUMONIA STAPHYLOCOCCAL [None]
  - INFECTION [None]
